FAERS Safety Report 20345537 (Version 2)
Quarter: 2022Q1

REPORT INFORMATION
  Report Type: Spontaneous
  Country: US (occurrence: US)
  Receive Date: 20220118
  Receipt Date: 20220303
  Transmission Date: 20220423
  Serious: Yes (Hospitalization)
  Sender: FDA-Public Use
  Company Number: US-MYLANLABS-2022M1003113

PATIENT
  Age: 44 Year
  Sex: Female

DRUGS (10)
  1. PREDNISONE [Suspect]
     Active Substance: PREDNISONE
     Indication: Cutaneous sarcoidosis
     Dosage: 20 MILLIGRAM, QD
     Route: 048
  2. PREDNISONE [Suspect]
     Active Substance: PREDNISONE
     Dosage: 60 MILLIGRAM, QD, DOSE INCREASED FROM 20MG TO 60MG
     Route: 048
  3. PREDNISONE [Suspect]
     Active Substance: PREDNISONE
     Dosage: UNK, DOSE DECREASED
     Route: 048
  4. METHOTREXATE [Suspect]
     Active Substance: METHOTREXATE
     Indication: Cutaneous sarcoidosis
     Dosage: UNK
     Route: 065
  5. METHOTREXATE [Suspect]
     Active Substance: METHOTREXATE
     Dosage: 15 MILLIGRAM, QW
     Route: 065
  6. METHOTREXATE [Suspect]
     Active Substance: METHOTREXATE
     Dosage: UNK (DOSE DECREASED)
     Route: 065
  7. ITRACONAZOLE [Suspect]
     Active Substance: ITRACONAZOLE
     Indication: Disseminated sporotrichosis
     Dosage: 200 MILLIGRAM, BID
     Route: 048
  8. TERBINAFINE [Suspect]
     Active Substance: TERBINAFINE
     Indication: Disseminated sporotrichosis
     Dosage: UNK
     Route: 065
  9. AMPHOTERICIN B [Suspect]
     Active Substance: AMPHOTERICIN B
     Indication: Disseminated sporotrichosis
     Dosage: 5 MILLIGRAM/KILOGRAM, QD, INFUSION
  10. POSACONAZOLE [Suspect]
     Active Substance: POSACONAZOLE
     Indication: Disseminated sporotrichosis
     Dosage: UNK
     Route: 065

REACTIONS (5)
  - Tenosynovitis [Recovered/Resolved]
  - Iridocyclitis [Recovered/Resolved]
  - Endophthalmitis [Recovered/Resolved]
  - Disseminated sporotrichosis [Recovered/Resolved]
  - Off label use [Unknown]
